FAERS Safety Report 8440863 (Version 4)
Quarter: 2016Q4

REPORT INFORMATION
  Report Type: Report from Study
  Country: US (occurrence: US)
  Receive Date: 20120305
  Receipt Date: 20161004
  Transmission Date: 20170207
  Serious: Yes (Hospitalization, Other)
  Sender: FDA-Public Use
  Company Number: US-ROCHE-1045124

PATIENT
  Age: 73 Year
  Sex: Female
  Weight: 64.55 kg

DRUGS (9)
  1. BEVACIZUMAB [Suspect]
     Active Substance: BEVACIZUMAB
     Dosage: RECIEVED ON: 13/MAR/2013, ON 03/APR/2013, 24/APR/2013, 15/MAY/2013, 05/JUN/2013, 26/JUN/2013, 17/JUL
     Route: 042
     Dates: start: 20130220
  2. BEVACIZUMAB [Suspect]
     Active Substance: BEVACIZUMAB
     Dosage: RECIEVED ON: 02/MAY/2012, 23/MAY/2012, 13/JUN/2012, 05/JUL/2012, 25/JUL/2012, 15/AUG/2012, 05/SEP/20
     Route: 042
     Dates: start: 20120411
  3. IXABEPILONE [Suspect]
     Active Substance: IXABEPILONE
     Indication: ENDOMETRIAL CANCER
     Dosage: OVER 1 HOUR ON DAY 1.DATE OF LAST DOSE PRIOR TO SAE: 28/DEC/2011
     Route: 042
     Dates: start: 20111104
  4. IXABEPILONE [Suspect]
     Active Substance: IXABEPILONE
     Dosage: DOSE REDUCED  DUE TO 10% DECREASE IN BSA, RECIEVED ON: 03/NOV/2011, 28/DEC/2011, 18/JAN/2012, 08/FEB
     Route: 042
  5. BEVACIZUMAB [Suspect]
     Active Substance: BEVACIZUMAB
     Indication: ENDOMETRIAL CANCER
     Dosage: OVER 30-90 MINUTES ON DAY 1.DATE OF LAST DOSE PRIOR TO SAE: 28/DEC/2011, RECIEVED ON: 03/NOV/2016
     Route: 042
     Dates: start: 20111104
  6. CARBOPLATIN. [Suspect]
     Active Substance: CARBOPLATIN
     Indication: ENDOMETRIAL CANCER
     Dosage: ON DAY 1. DATE OF LAST DOSE PRIOR TO SAE: 28/DEC/2011
     Route: 042
     Dates: start: 20111104
  7. BEVACIZUMAB [Suspect]
     Active Substance: BEVACIZUMAB
     Dosage: DOSE REDUCED  DUE TO 10% DECREASE IN BSA, RECIEVED ON 28/DEC/2011 ,18/JAN/2012, 08/FEB/2012, 29/FEB/
     Route: 042
  8. BEVACIZUMAB [Suspect]
     Active Substance: BEVACIZUMAB
     Dosage: RECIEVED ON: 07/NOV/2012, 28/NOV/2012
     Route: 042
     Dates: start: 20120925
  9. CARBOPLATIN. [Suspect]
     Active Substance: CARBOPLATIN
     Dosage: DOSE REDUCED  DUE TO 10% DECREASE IN BSA
     Route: 042

REACTIONS (10)
  - Neutrophil count decreased [Recovered/Resolved]
  - Vomiting [Recovered/Resolved]
  - Hypokalaemia [Unknown]
  - Abdominal pain [Recovered/Resolved]
  - Blood bilirubin increased [Recovered/Resolved]
  - White blood cell count decreased [Recovered/Resolved]
  - Constipation [Recovered/Resolved]
  - Dyspnoea [Unknown]
  - Nausea [Recovered/Resolved]
  - Weight decreased [Unknown]

NARRATIVE: CASE EVENT DATE: 20120103
